FAERS Safety Report 15469217 (Version 3)
Quarter: 2019Q1

REPORT INFORMATION
  Report Type: Spontaneous
  Country: US (occurrence: US)
  Receive Date: 20181005
  Receipt Date: 20190117
  Transmission Date: 20190417
  Serious: Yes (Hospitalization, Other)
  Sender: FDA-Public Use
  Company Number: US-SA-2018SA272307

PATIENT
  Age: 39 Year
  Sex: Female
  Weight: 49.8 kg

DRUGS (19)
  1. PANTOPRAZOLE SODIUM. [Concomitant]
     Active Substance: PANTOPRAZOLE SODIUM
  2. DEXAMETHASONE. [Concomitant]
     Active Substance: DEXAMETHASONE
     Dosage: 4 MG
  3. SENNA [SENNA ALEXANDRINA] [Concomitant]
  4. ONDANSETRON [Concomitant]
     Active Substance: ONDANSETRON
     Dosage: 4 MG
  5. LENVIMA [Suspect]
     Active Substance: LENVATINIB
     Dosage: 18 UNK
     Dates: start: 20181102
  6. LEVETIRACETAM. [Concomitant]
     Active Substance: LEVETIRACETAM
     Dosage: 250 MG
  7. CIPROFLOXACIN. [Concomitant]
     Active Substance: CIPROFLOXACIN
     Route: 065
  8. OXYCODONE [Concomitant]
     Active Substance: OXYCODONE
     Dosage: 30 MG
  9. AMOXICILLIN CLAVULANIC ACID [Concomitant]
     Active Substance: AMOXICILLIN\CLAVULANIC ACID
  10. PROCHLORPERAZINE MALEATE. [Concomitant]
     Active Substance: PROCHLORPERAZINE MALEATE
     Dosage: 10 MG
  11. LENVIMA [Suspect]
     Active Substance: LENVATINIB
     Dosage: 18 MG, QOW
     Dates: start: 20181017, end: 20181019
  12. POLYETHYLENE GLYCOL [Concomitant]
     Active Substance: POLYETHYLENE GLYCOLS
  13. VITAMIN D3 [Concomitant]
     Active Substance: CHOLECALCIFEROL
  14. METHADONE [Concomitant]
     Active Substance: METHADONE HYDROCHLORIDE
     Dosage: 10 MG
  15. LORAZEPAM. [Concomitant]
     Active Substance: LORAZEPAM
     Dosage: 0.5 MG
  16. NYSTATIN. [Concomitant]
     Active Substance: NYSTATIN
  17. MIRTAZAPINE. [Concomitant]
     Active Substance: MIRTAZAPINE
     Dosage: 15 MG
  18. LACTULOSE. [Concomitant]
     Active Substance: LACTULOSE
  19. AUBAGIO [Suspect]
     Active Substance: TERIFLUNOMIDE
     Indication: MULTIPLE SCLEROSIS
     Dosage: 14 MG, QD
     Route: 048

REACTIONS (6)
  - Seizure [Unknown]
  - Renal cancer metastatic [Unknown]
  - Tooth extraction [Recovered/Resolved]
  - Renal cancer stage IV [Unknown]
  - Brain neoplasm [Unknown]
  - Urinary tract infection [Unknown]

NARRATIVE: CASE EVENT DATE: 2018
